FAERS Safety Report 5612494-4 (Version None)
Quarter: 2008Q1

REPORT INFORMATION
  Report Type: 
  Country: None (occurrence: None)
  Receive Date: 20080204
  Receipt Date: 20080129
  Transmission Date: 20080703
  Serious: Yes (Other)
  Sender: FDA-Public Use
  Company Number: JP-ASTRAZENECA-2008AP00672

PATIENT
  Age: 50 Year
  Sex: Female

DRUGS (4)
  1. SEROQUEL [Suspect]
     Indication: SCHIZOPHRENIA
     Route: 048
     Dates: start: 20070322
  2. VALPROATE SODIUM [Suspect]
     Route: 048
     Dates: start: 20071106
  3. DIAZEPAM [Concomitant]
  4. SILECE [Concomitant]

REACTIONS (1)
  - THROMBOCYTOPENIA [None]
